FAERS Safety Report 9401829 (Version 1)
Quarter: 2013Q3

REPORT INFORMATION
  Report Type: Report from Study
  Country: CA (occurrence: CA)
  Receive Date: 20130716
  Receipt Date: 20130716
  Transmission Date: 20140515
  Serious: Yes (Other)
  Sender: FDA-Public Use
  Company Number: CA-JNJFOC-20130706784

PATIENT
  Age: 56 Year
  Sex: Female

DRUGS (1)
  1. SIMPONI [Suspect]
     Indication: SJOGREN^S SYNDROME
     Route: 058
     Dates: start: 20130322, end: 20130622

REACTIONS (3)
  - Lung infection [Unknown]
  - Malaise [Unknown]
  - Off label use [Unknown]
